FAERS Safety Report 20847297 (Version 1)
Quarter: 2022Q2

REPORT INFORMATION
  Report Type: Spontaneous
  Country: GB (occurrence: GB)
  Receive Date: 20220519
  Receipt Date: 20220519
  Transmission Date: 20220721
  Serious: Yes (Other)
  Sender: FDA-Public Use
  Company Number: GB-Glenmark Generics Europe Ltd.-GGEL20110400469

PATIENT
  Age: 35 Year
  Sex: Female

DRUGS (1)
  1. GABAPENTIN [Suspect]
     Active Substance: GABAPENTIN
     Indication: Nerve compression
     Dosage: 300 MILLIGRAM
     Route: 065

REACTIONS (5)
  - Neutropenia [Recovered/Resolved]
  - Drug reaction with eosinophilia and systemic symptoms [Recovered/Resolved]
  - Lymphopenia [Recovered/Resolved]
  - Alanine aminotransferase increased [Recovered/Resolved]
  - Lymphadenopathy [Recovered/Resolved]
